FAERS Safety Report 19176657 (Version 1)
Quarter: 2021Q2

REPORT INFORMATION
  Report Type: Spontaneous
  Country: GB (occurrence: GB)
  Receive Date: 20210423
  Receipt Date: 20210423
  Transmission Date: 20210717
  Serious: Yes (Other)
  Sender: FDA-Public Use
  Company Number: GB-BAXTER-2021BAX007909

PATIENT
  Age: 77 Year
  Sex: Female

DRUGS (1)
  1. EXTRANEAL [Suspect]
     Active Substance: CALCIUM CHLORIDE\ICODEXTRIN\MAGNESIUM CHLORIDE\SODIUM CHLORIDE\SODIUM LACTATE
     Indication: PERITONEAL DIALYSIS
     Route: 033
     Dates: start: 20210412

REACTIONS (5)
  - Blood pressure abnormal [Recovered/Resolved]
  - Pallor [Unknown]
  - Fatigue [Unknown]
  - Oxygen saturation decreased [Unknown]
  - Peritonitis [Unknown]

NARRATIVE: CASE EVENT DATE: 20210414
